FAERS Safety Report 25808880 (Version 1)
Quarter: 2025Q3

REPORT INFORMATION
  Report Type: Spontaneous
  Country: JP (occurrence: JP)
  Receive Date: 20250916
  Receipt Date: 20250916
  Transmission Date: 20251021
  Serious: Yes (Other)
  Sender: BRACCO
  Company Number: JP-BRACCO-2025JP06195

PATIENT
  Age: 77 Year
  Sex: Female

DRUGS (12)
  1. IOMERON [Suspect]
     Active Substance: IOMEPROL
     Indication: Computerised tomogram
     Route: 042
     Dates: start: 20250425, end: 20250425
  2. Ambroxol hydrochloride od [Concomitant]
     Route: 048
  3. Amlodipine od towa [Concomitant]
     Route: 048
  4. CALONAL [Concomitant]
     Active Substance: ACETAMINOPHEN
     Route: 048
  5. Carvedilol dsep [Concomitant]
     Route: 048
  6. TU-100 [Concomitant]
     Active Substance: ASIAN GINSENG\GINGER\ZANTHOXYLUM PIPERITUM FRUIT PULP
     Route: 048
  7. DIGOXIN [Concomitant]
     Active Substance: DIGOXIN
     Route: 048
  8. ENTRESTO [Concomitant]
     Active Substance: SACUBITRIL\VALSARTAN
     Route: 048
  9. ESOMEPRAZOLE [Concomitant]
     Active Substance: ESOMEPRAZOLE
     Route: 048
  10. EDOXABAN TOSYLATE [Concomitant]
     Active Substance: EDOXABAN TOSYLATE
     Route: 048
  11. MEDROL [Concomitant]
     Active Substance: METHYLPREDNISOLONE
     Route: 048
     Dates: start: 20250424, end: 20250425
  12. Tolvaptan od otsuka [Concomitant]
     Route: 048

REACTIONS (2)
  - Contraindicated product administered [Recovered/Resolved]
  - Anaphylactic reaction [Recovered/Resolved]

NARRATIVE: CASE EVENT DATE: 20250425
